FAERS Safety Report 4949459-1 (Version None)
Quarter: 2006Q1

REPORT INFORMATION
  Report Type: 
  Country: None (occurrence: None)
  Receive Date: 20060321
  Receipt Date: 20041005
  Transmission Date: 20060701
  Serious: Yes (Hospitalization)
  Sender: FDA-Public Use
  Company Number: US-ROCHE-382174

PATIENT
  Age: 31 Year
  Sex: Male

DRUGS (9)
  1. PEG-INTERFERON ALFA 2A (RO 25-8310) [Suspect]
     Route: 058
     Dates: start: 20040810, end: 20040920
  2. RIBAVIRIN [Suspect]
     Route: 048
     Dates: start: 20040810, end: 20040922
  3. PREVACID [Concomitant]
     Dates: start: 20020615
  4. LISINOPRIL [Concomitant]
     Indication: HYPERTENSION
     Dates: start: 20040315
  5. TOPROL-XL [Concomitant]
     Indication: HYPERTENSION
     Dates: start: 20030715
  6. EFFEXOR XR [Concomitant]
     Indication: IRRITABILITY
     Dates: start: 20040817, end: 20040817
  7. ZOLOFT [Concomitant]
     Indication: IRRITABILITY
     Dates: start: 20040825
  8. BENADRYL [Concomitant]
     Dosage: DRUG REPORTED AS ^BENADRYL LOTION N^.
     Dates: start: 20040817, end: 20040817
  9. ZITHROMAX [Concomitant]
     Dosage: REPORTED AS ZITHROMAX ^PFIZER^.
     Dates: start: 20040916

REACTIONS (8)
  - ATELECTASIS [None]
  - DEEP VEIN THROMBOSIS [None]
  - ELECTROCARDIOGRAM T WAVE AMPLITUDE DECREASED [None]
  - HAEMOGLOBIN DECREASED [None]
  - LUNG NEOPLASM [None]
  - PNEUMONIA [None]
  - SCAR [None]
  - TRICUSPID VALVE INCOMPETENCE [None]
